FAERS Safety Report 6963672-3 (Version None)
Quarter: 2010Q3

REPORT INFORMATION
  Report Type: 
  Country: None (occurrence: None)
  Receive Date: 20100902
  Receipt Date: 20100827
  Transmission Date: 20110219
  Serious: Yes (Other)
  Sender: FDA-Public Use
  Company Number: A0875168A

PATIENT
  Age: 67 Year
  Sex: Male

DRUGS (3)
  1. OFATUMUMAB [Suspect]
     Indication: DRUG DISPENSING ERROR
     Route: 042
     Dates: start: 20100719, end: 20100719
  2. INVESTIGATIONAL DRUG [Suspect]
     Indication: NEOPLASM
     Route: 042
  3. D5W/NS [Concomitant]
     Dosage: 500CC SEE DOSAGE TEXT
     Route: 042
     Dates: start: 20100719, end: 20100719

REACTIONS (13)
  - BLOOD PRESSURE SYSTOLIC DECREASED [None]
  - COUGH [None]
  - DRUG DISPENSING ERROR [None]
  - DYSPHONIA [None]
  - FLUSHING [None]
  - HYPERSENSITIVITY [None]
  - INFUSION SITE RASH [None]
  - INFUSION SITE REACTION [None]
  - OVERDOSE [None]
  - PARAESTHESIA [None]
  - RASH [None]
  - TACHYCARDIA [None]
  - URTICARIA [None]
